FAERS Safety Report 9449879 (Version 4)
Quarter: 2014Q1

REPORT INFORMATION
  Report Type: Report from Study
  Country: US (occurrence: US)
  Receive Date: 20130809
  Receipt Date: 20140331
  Transmission Date: 20141002
  Serious: Yes (Hospitalization)
  Sender: FDA-Public Use
  Company Number: US-JNJFOC-20130802382

PATIENT
  Age: 51 Year
  Sex: Male
  Weight: 176.45 kg

DRUGS (19)
  1. STELARA [Suspect]
     Indication: PSORIASIS
     Route: 058
     Dates: start: 20130326, end: 20130423
  2. STELARA [Suspect]
     Indication: PSORIASIS
     Route: 058
  3. STELARA [Suspect]
     Indication: PSORIASIS
     Route: 058
     Dates: start: 201303
  4. ETANERCEPT [Suspect]
     Indication: PRODUCT USED FOR UNKNOWN INDICATION
     Route: 065
     Dates: start: 200908, end: 201110
  5. LISINOPRIL/HCTZ [Concomitant]
     Route: 048
     Dates: start: 20070910
  6. LISINOPRIL/HCTZ [Concomitant]
     Route: 048
     Dates: start: 20070910
  7. METHOTREXATE [Concomitant]
     Route: 048
     Dates: start: 20070910
  8. PRAVASTATIN [Concomitant]
     Route: 048
     Dates: start: 20110421
  9. AMLODIPINE [Concomitant]
     Route: 048
     Dates: start: 20120607
  10. CITALOPRAM [Concomitant]
     Route: 048
     Dates: start: 20070910
  11. ROPINIROLE [Concomitant]
     Route: 065
  12. SILDENAFIL [Concomitant]
     Route: 065
  13. FLEXERIL [Concomitant]
     Indication: PAIN
     Dosage: AS NEEDED FOR SPASTICITY AND PAIN.
     Route: 065
  14. FLEXERIL [Concomitant]
     Indication: MUSCLE SPASTICITY
     Dosage: AS NEEDED FOR SPASTICITY AND PAIN.
     Route: 065
  15. NAPROXEN [Concomitant]
     Indication: PAIN
     Dosage: AS NEEDED FOR PAIN.
     Route: 065
  16. ALBUTEROL [Concomitant]
     Route: 065
  17. FLUTICASONE [Concomitant]
     Route: 065
  18. FOLATE [Concomitant]
     Route: 065
  19. POTASSIUM CHLORIDE [Concomitant]
     Route: 065

REACTIONS (4)
  - Sepsis [Recovered/Resolved]
  - Cellulitis [Recovering/Resolving]
  - Onychomycosis [Recovering/Resolving]
  - Diabetes mellitus [Unknown]
